FAERS Safety Report 25434053 (Version 3)
Quarter: 2025Q3

REPORT INFORMATION
  Report Type: Spontaneous
  Country: JP (occurrence: JP)
  Receive Date: 20250613
  Receipt Date: 20250724
  Transmission Date: 20251021
  Serious: Yes (Life-Threatening, Hospitalization, Disabling, Other)
  Sender: MERCK SHARP & DOHME LLC
  Company Number: JP-009507513-2294554

PATIENT
  Age: 72 Year
  Sex: Male

DRUGS (3)
  1. KEYTRUDA [Suspect]
     Active Substance: PEMBROLIZUMAB
     Indication: Gallbladder cancer stage IV
     Route: 041
     Dates: start: 202504, end: 202505
  2. CISPLATIN [Suspect]
     Active Substance: CISPLATIN
     Indication: Gallbladder cancer stage IV
     Dates: start: 202504, end: 202505
  3. GEMCITABINE [Suspect]
     Active Substance: GEMCITABINE
     Indication: Gallbladder cancer stage IV
     Dates: start: 202504, end: 202505

REACTIONS (9)
  - Myocardial necrosis marker increased [Unknown]
  - Myositis [Not Recovered/Not Resolved]
  - Anal sphincter atony [Unknown]
  - Interleukin level increased [Unknown]
  - Hepatic function abnormal [Unknown]
  - Bradycardia [Unknown]
  - Cardiomyopathy [Unknown]
  - Blood pressure decreased [Unknown]
  - Myocarditis [Unknown]

NARRATIVE: CASE EVENT DATE: 20250101
